FAERS Safety Report 18860139 (Version 6)
Quarter: 2022Q2

REPORT INFORMATION
  Report Type: Report from Study
  Country: US (occurrence: US)
  Receive Date: 20210208
  Receipt Date: 20220627
  Transmission Date: 20220720
  Serious: Yes (Hospitalization)
  Sender: FDA-Public Use
  Company Number: US-TAKEDA-2021TUS004878

PATIENT
  Age: 78 Year
  Sex: Female
  Weight: 96 kg

DRUGS (34)
  1. HUMAN IMMUNOGLOBULIN G\HYALURONIDASE RECOMBINANT HUMAN [Suspect]
     Active Substance: HUMAN IMMUNOGLOBULIN G\HYALURONIDASE RECOMBINANT HUMAN
     Indication: Immunodeficiency common variable
     Dosage: 30 GRAM, Q4WEEKS
     Route: 058
     Dates: start: 20210129
  2. ACETAMINOPHEN [Concomitant]
     Active Substance: ACETAMINOPHEN
  3. DIPHENHYDRAMINE [Concomitant]
     Active Substance: DIPHENHYDRAMINE
  4. LIDOCAINE [Concomitant]
     Active Substance: LIDOCAINE
  5. SODIUM CHLORIDE [Concomitant]
     Active Substance: SODIUM CHLORIDE
  6. EPINEPHRINE [Concomitant]
     Active Substance: EPINEPHRINE
  7. CLONIDINE [Concomitant]
     Active Substance: CLONIDINE
  8. FLUTICASONE [Concomitant]
     Active Substance: FLUTICASONE
  9. SPIRONOLACTONE [Concomitant]
     Active Substance: SPIRONOLACTONE
  10. ALPRAZOLAM [Concomitant]
     Active Substance: ALPRAZOLAM
  11. PANTOPRAZOLE [Concomitant]
     Active Substance: PANTOPRAZOLE
  12. SPIRIVA [Concomitant]
     Active Substance: TIOTROPIUM BROMIDE MONOHYDRATE
  13. MAGNESIUM [Concomitant]
     Active Substance: MAGNESIUM
  14. CLARITIN [Concomitant]
     Active Substance: LORATADINE
  15. AZOPT [Concomitant]
     Active Substance: BRINZOLAMIDE
  16. DIETARY SUPPLEMENT\HERBALS\MILK THISTLE [Concomitant]
     Active Substance: DIETARY SUPPLEMENT\HERBALS\MILK THISTLE
  17. PROAIR HFA [Concomitant]
     Active Substance: ALBUTEROL SULFATE
  18. EDARBI [Concomitant]
     Active Substance: AZILSARTAN KAMEDOXOMIL
  19. SILVER [Concomitant]
     Active Substance: SILVER
  20. LUMIGAN [Concomitant]
     Active Substance: BIMATOPROST
  21. RESTASIS [Concomitant]
     Active Substance: CYCLOSPORINE
  22. ASPIRIN [Concomitant]
     Active Substance: ASPIRIN
  23. MONTELUKAST [Concomitant]
     Active Substance: MONTELUKAST SODIUM
  24. FUROSEMIDE [Concomitant]
     Active Substance: FUROSEMIDE
  25. ALBUTEROL [Concomitant]
     Active Substance: ALBUTEROL
  26. VITAMIN D3 [Concomitant]
     Active Substance: CHOLECALCIFEROL
  27. GABAPENTIN [Concomitant]
     Active Substance: GABAPENTIN
  28. FOLIC ACID [Concomitant]
     Active Substance: FOLIC ACID
  29. MUPIROCIN [Concomitant]
     Active Substance: MUPIROCIN
  30. NITROFURANTOIN [Concomitant]
     Active Substance: NITROFURANTOIN
  31. MINERALS\VITAMINS [Concomitant]
     Active Substance: MINERALS\VITAMINS
  32. OXYGEN [Concomitant]
     Active Substance: OXYGEN
  33. BUMETANIDE [Concomitant]
     Active Substance: BUMETANIDE
  34. TYLENOL PM EXTRA STRENGTH [Concomitant]
     Active Substance: ACETAMINOPHEN\DIPHENHYDRAMINE HYDROCHLORIDE

REACTIONS (7)
  - Hospitalisation [Unknown]
  - Asthenia [Unknown]
  - Oral pain [Unknown]
  - Gingival disorder [Unknown]
  - Cystitis [Unknown]
  - Chills [Unknown]
  - Dizziness [Unknown]

NARRATIVE: CASE EVENT DATE: 20210618
